FAERS Safety Report 15618498 (Version 1)
Quarter: 2018Q4

REPORT INFORMATION
  Report Type: Spontaneous
  Country: US (occurrence: US)
  Receive Date: 20181114
  Receipt Date: 20181114
  Transmission Date: 20190205
  Serious: No
  Sender: FDA-Public Use
  Company Number: US-MIST-TIR-2018-0825

PATIENT
  Sex: Female

DRUGS (3)
  1. TIROSINT [Suspect]
     Active Substance: LEVOTHYROXINE SODIUM
     Dosage: 75MCG FOR ONE DAY ALTERNATING WITH TWO DAYS OF NO TIROSINT
     Route: 048
     Dates: start: 20180729
  2. TIROSINT [Suspect]
     Active Substance: LEVOTHYROXINE SODIUM
     Dosage: 75MCG EVERY OTHER DAY
     Route: 048
     Dates: start: 201807, end: 201807
  3. TIROSINT [Suspect]
     Active Substance: LEVOTHYROXINE SODIUM
     Indication: AUTOIMMUNE THYROIDITIS
     Dosage: 75MCG DAILY
     Route: 048
     Dates: start: 2013

REACTIONS (8)
  - Gait inability [Recovered/Resolved]
  - Swelling [Recovered/Resolved]
  - Muscular weakness [Recovered/Resolved]
  - Pseudostroke [Recovered/Resolved]
  - Inappropriate schedule of product administration [Unknown]
  - Hypoaesthesia [Recovered/Resolved]
  - Foreign body sensation in eyes [Recovered/Resolved]
  - Limb discomfort [Recovered/Resolved]

NARRATIVE: CASE EVENT DATE: 2018
